FAERS Safety Report 6276801-4 (Version None)
Quarter: 2009Q3

REPORT INFORMATION
  Report Type: 
  Country: None (occurrence: None)
  Receive Date: 20090722
  Receipt Date: 20080902
  Transmission Date: 20100115
  Serious: No
  Sender: FDA-Public Use
  Company Number: US-BRISTOL-MYERS SQUIBB COMPANY-14321343

PATIENT
  Age: 83 Year
  Sex: Female
  Weight: 79 kg

DRUGS (5)
  1. COUMADIN [Suspect]
     Indication: HEART RATE IRREGULAR
     Dosage: STAED 6YS AGO.1DF=6MG/DAY ALTERNATING WITH 4MG/DAY. STOPED FOR 3 DAYS AND RESTARTED WITH SAME DOSE
  2. VASOTEC [Concomitant]
  3. PROTONIX [Concomitant]
  4. TYLENOL (CAPLET) [Concomitant]
  5. VITAMINS [Concomitant]

REACTIONS (1)
  - EPISTAXIS [None]
